FAERS Safety Report 11440124 (Version 1)
Quarter: 2015Q3

REPORT INFORMATION
  Report Type: Spontaneous
  Country: US (occurrence: US)
  Receive Date: 20150901
  Receipt Date: 20150901
  Transmission Date: 20151125
  Serious: Yes (Hospitalization)
  Sender: FDA-Public Use
  Company Number: US-ROCHE-1098151

PATIENT
  Sex: Male

DRUGS (3)
  1. RIBAVIRIN. [Suspect]
     Active Substance: RIBAVIRIN
     Indication: HEPATITIS C
     Route: 048
     Dates: start: 20120727
  2. TELAPREVIR [Suspect]
     Active Substance: TELAPREVIR
     Indication: HEPATITIS C
     Route: 065
     Dates: start: 20120727
  3. PEGASYS [Suspect]
     Active Substance: PEGINTERFERON ALFA-2A
     Indication: HEPATITIS C
     Route: 058
     Dates: start: 20120727

REACTIONS (10)
  - Dyspnoea [Unknown]
  - Insomnia [Unknown]
  - Rash generalised [Unknown]
  - Injection site reaction [Unknown]
  - Anaemia [Unknown]
  - Influenza like illness [Unknown]
  - Rash pruritic [Unknown]
  - Restlessness [Unknown]
  - Dry mouth [Unknown]
  - Fatigue [Unknown]
